FAERS Safety Report 7960468-0 (Version None)
Quarter: 2011Q4

REPORT INFORMATION
  Report Type: 
  Country: None (occurrence: None)
  Receive Date: 20111206
  Receipt Date: 20111128
  Transmission Date: 20120403
  Serious: Yes (Hospitalization, Other)
  Sender: FDA-Public Use
  Company Number: PHHY2011RO104848

PATIENT
  Age: 82 Year
  Sex: Female

DRUGS (1)
  1. OMEPRAZOLE [Suspect]

REACTIONS (6)
  - HYPOALBUMINAEMIA [None]
  - CLOSTRIDIUM DIFFICILE COLITIS [None]
  - HYPOPROTEINAEMIA [None]
  - FLATULENCE [None]
  - HYPONATRAEMIA [None]
  - ABDOMINAL DISTENSION [None]
